FAERS Safety Report 5302948-2 (Version None)
Quarter: 2007Q2

REPORT INFORMATION
  Report Type: 
  Country: None (occurrence: None)
  Receive Date: 20070417
  Receipt Date: 20070417
  Transmission Date: 20071010
  Serious: Yes (Other)
  Sender: FDA-Public Use
  Company Number: None

PATIENT
  Sex: Male
  Weight: 97.5234 kg

DRUGS (1)
  1. BUSPAR [Suspect]
     Indication: ANXIETY
     Dosage: 10MG 2 PO
     Route: 048
     Dates: start: 20070410, end: 20070415

REACTIONS (5)
  - CHEST PAIN [None]
  - FATIGUE [None]
  - MALAISE [None]
  - NAUSEA [None]
  - PANIC REACTION [None]
